FAERS Safety Report 5408216-2 (Version None)
Quarter: 2007Q3

REPORT INFORMATION
  Report Type: 
  Country: None (occurrence: None)
  Receive Date: 20070806
  Receipt Date: 20070806
  Transmission Date: 20080115
  Serious: Yes (Death)
  Sender: FDA-Public Use
  Company Number: None

PATIENT
  Age: 61 Year
  Sex: Male
  Weight: 87.9978 kg

DRUGS (1)
  1. AVANDIA [Suspect]

REACTIONS (2)
  - ARTERIOSCLEROSIS CORONARY ARTERY [None]
  - SUDDEN DEATH [None]
